FAERS Safety Report 16945432 (Version 1)
Quarter: 2019Q4

REPORT INFORMATION
  Report Type: Spontaneous
  Country: US (occurrence: US)
  Receive Date: 20191021
  Receipt Date: 20191021
  Transmission Date: 20200122
  Serious: Yes (Life-Threatening)
  Sender: FDA-Public Use
  Company Number: None

PATIENT
  Age: 63 Year
  Sex: Male
  Weight: 83.25 kg

DRUGS (16)
  1. PROTONIX [Concomitant]
     Active Substance: PANTOPRAZOLE SODIUM
  2. CELEBREX [Concomitant]
     Active Substance: CELECOXIB
  3. VICTOZA [Suspect]
     Active Substance: LIRAGLUTIDE
     Indication: TYPE 2 DIABETES MELLITUS
     Dosage: ?          QUANTITY:1.2 INJECTION(S);?
     Route: 058
  4. ALTACE [Concomitant]
     Active Substance: RAMIPRIL
  5. METOPROLOL. [Concomitant]
     Active Substance: METOPROLOL
  6. ATORVASTATIN [Concomitant]
     Active Substance: ATORVASTATIN
  7. OXYCODONE [Concomitant]
     Active Substance: OXYCODONE
  8. FISH OIL [Concomitant]
     Active Substance: FISH OIL
  9. BIOTIN [Concomitant]
     Active Substance: BIOTIN
  10. FLOMAX [Concomitant]
     Active Substance: TAMSULOSIN HYDROCHLORIDE
  11. LIDODERM [Concomitant]
     Active Substance: LIDOCAINE
  12. NASONEX [Concomitant]
     Active Substance: MOMETASONE FUROATE
  13. VICK^S SINEX [Concomitant]
  14. OXYCONTIN [Concomitant]
     Active Substance: OXYCODONE HYDROCHLORIDE
  15. FARXIGA [Concomitant]
     Active Substance: DAPAGLIFLOZIN PROPANEDIOL
  16. VITAMIN D [Concomitant]
     Active Substance: VITAMIN D NOS

REACTIONS (1)
  - Pancreatic failure [None]

NARRATIVE: CASE EVENT DATE: 20191011
